FAERS Safety Report 18058555 (Version 1)
Quarter: 2020Q3

REPORT INFORMATION
  Report Type: Spontaneous
  Country: FR (occurrence: FR)
  Receive Date: 20200723
  Receipt Date: 20200723
  Transmission Date: 20201103
  Serious: Yes (Other)
  Sender: FDA-Public Use
  Company Number: FR-AXELLIA-003270

PATIENT
  Age: 49 Year
  Sex: Female

DRUGS (5)
  1. CEFTRIAXONE MYLAN [Suspect]
     Active Substance: CEFTRIAXONE
     Indication: DEVICE RELATED INFECTION
     Route: 042
     Dates: start: 20200510, end: 20200511
  2. AMIKACINE MYLAN [Suspect]
     Active Substance: AMIKACIN
     Indication: DEVICE RELATED INFECTION
     Route: 042
     Dates: start: 20200510, end: 20200510
  3. ENDOXAN [Suspect]
     Active Substance: CYCLOPHOSPHAMIDE
     Indication: BREAST CANCER
     Dosage: DOSE: 1 UNIT UNK
     Route: 042
     Dates: start: 20200402, end: 20200423
  4. VANCOMYCIN [Suspect]
     Active Substance: VANCOMYCIN
     Indication: STAPHYLOCOCCAL INFECTION
     Route: 042
     Dates: start: 20200510, end: 20200512
  5. EPIRUBICIN MEDAC [Suspect]
     Active Substance: EPIRUBICIN HYDROCHLORIDE
     Indication: BREAST CANCER
     Dosage: STRENGTH: 2 MG / ML, DOSE: 1 UNIT UNK
     Route: 042
     Dates: start: 20200402, end: 20200423

REACTIONS (1)
  - Hepatitis [Recovered/Resolved]

NARRATIVE: CASE EVENT DATE: 20200513
